FAERS Safety Report 25187970 (Version 2)
Quarter: 2025Q2

REPORT INFORMATION
  Report Type: Spontaneous
  Country: US (occurrence: US)
  Receive Date: 20250411
  Receipt Date: 20250423
  Transmission Date: 20250717
  Serious: No
  Sender: LUPIN
  Company Number: US-LUPIN PHARMACEUTICALS INC.-2025-02960

PATIENT
  Age: 57 Year
  Weight: 90.703 kg

DRUGS (2)
  1. CEFADROXIL [Suspect]
     Active Substance: CEFADROXIL
     Indication: Hip arthroplasty
     Dosage: UNK UNK, BID
     Route: 065
  2. CEFADROXIL [Suspect]
     Active Substance: CEFADROXIL
     Dosage: UNK, BID (ONE CAPSULE)
     Route: 065

REACTIONS (2)
  - Incorrect dose administered [Unknown]
  - Product prescribing issue [Unknown]
